FAERS Safety Report 5382943-8 (Version None)
Quarter: 2007Q2

REPORT INFORMATION
  Report Type: 
  Country: None (occurrence: None)
  Receive Date: 20070629
  Receipt Date: 20070409
  Transmission Date: 20071010
  Serious: Yes (Hospitalization)
  Sender: FDA-Public Use
  Company Number: US200704001630

PATIENT
  Age: 48 Year
  Sex: Female

DRUGS (14)
  1. HUMALOG [Suspect]
  2. CYMBALTA [Concomitant]
  3. POTASSIUM (POTASSIUM) [Concomitant]
  4. NEXIUM [Concomitant]
  5. RISPERDAL [Concomitant]
  6. VICODIN [Concomitant]
  7. DYAZIDE [Concomitant]
  8. LISINOPRIL [Concomitant]
  9. LORAZEPAM [Concomitant]
  10. METFORMIN HCL [Concomitant]
  11. LIPITOR [Concomitant]
  12. GLIPIZIDE [Concomitant]
  13. BENTYL [Concomitant]
  14. FAMOTIDINE [Concomitant]

REACTIONS (2)
  - BLOOD GLUCOSE DECREASED [None]
  - BLOOD GLUCOSE INCREASED [None]
